FAERS Safety Report 6589816-3 (Version None)
Quarter: 2010Q1

REPORT INFORMATION
  Report Type: 
  Country: None (occurrence: None)
  Receive Date: 20100219
  Receipt Date: 20100203
  Transmission Date: 20100710
  Serious: No
  Sender: FDA-Public Use
  Company Number: US-JNJFOC-20100202559

PATIENT
  Sex: Male
  Weight: 113.4 kg

DRUGS (3)
  1. FENTANYL-100 [Suspect]
     Indication: MUSCULOSKELETAL PAIN
     Dosage: NDC 0781-7113-55
     Route: 062
  2. FENTANYL-100 [Suspect]
     Indication: CHEST PAIN
     Dosage: NDC 0781-7113-55
     Route: 062
  3. FENTANYL-100 [Suspect]
     Indication: NECK PAIN
     Dosage: NDC 0781-7113-55
     Route: 062

REACTIONS (1)
  - WRONG TECHNIQUE IN DRUG USAGE PROCESS [None]
